FAERS Safety Report 11371931 (Version 1)
Quarter: 2015Q3

REPORT INFORMATION
  Report Type: Spontaneous
  Country: AR (occurrence: AR)
  Receive Date: 20150812
  Receipt Date: 20150812
  Transmission Date: 20151125
  Serious: Yes (Other)
  Sender: FDA-Public Use
  Company Number: PHHY2015AR092556

PATIENT
  Age: 32 Year
  Sex: Female

DRUGS (1)
  1. GILENYA [Suspect]
     Active Substance: FINGOLIMOD HYDROCHLORIDE
     Indication: EXPOSURE VIA FATHER
     Dosage: FETAL DRUG EXPOSURE VIA FATHER
     Route: 050

REACTIONS (2)
  - Abortion spontaneous [Unknown]
  - Exposure via partner [Unknown]

NARRATIVE: CASE EVENT DATE: 20150810
